FAERS Safety Report 10979168 (Version 1)
Quarter: 2015Q1

REPORT INFORMATION
  Report Type: Spontaneous
  Country: US (occurrence: None)
  Receive Date: 20150226
  Receipt Date: 20150226
  Transmission Date: 20150721
  Serious: Yes (Other)
  Sender: FDA-Public Use
  Company Number: TPA2013A05388

PATIENT
  Age: 79 Year
  Sex: Male

DRUGS (5)
  1. METFORMIN [Concomitant]
     Active Substance: METFORMIN HYDROCHLORIDE
  2. ACTOS [Suspect]
     Active Substance: PIOGLITAZONE HYDROCHLORIDE
     Indication: TYPE 2 DIABETES MELLITUS
     Dates: start: 20021217, end: 20110915
  3. GLUCOPHAGE [Concomitant]
     Active Substance: METFORMIN HYDROCHLORIDE
  4. MICRONASE (GLIBENCLAMIDE) [Concomitant]
  5. DIABETA [Concomitant]
     Active Substance: GLYBURIDE

REACTIONS (2)
  - Haematuria [None]
  - Bladder transitional cell carcinoma recurrent [None]

NARRATIVE: CASE EVENT DATE: 20080919
